FAERS Safety Report 5183872-5 (Version None)
Quarter: 2006Q4

REPORT INFORMATION
  Report Type: 
  Country: None (occurrence: None)
  Receive Date: 20061220
  Receipt Date: 20060222
  Transmission Date: 20070319
  Serious: No
  Sender: FDA-Public Use
  Company Number: US-GLAXOSMITHKLINE-A0594760A

PATIENT
  Age: 46 Year
  Sex: Female

DRUGS (1)
  1. MEMBERS MARK NTS ORIGINAL, 14MG [Suspect]
     Route: 062
     Dates: end: 20060221

REACTIONS (2)
  - ABNORMAL DREAMS [None]
  - HEART RATE INCREASED [None]
